FAERS Safety Report 10788613 (Version 3)
Quarter: 2015Q1

REPORT INFORMATION
  Report Type: Spontaneous
  Country: AU (occurrence: AU)
  Receive Date: 20150212
  Receipt Date: 20150316
  Transmission Date: 20150721
  Serious: Yes (Hospitalization, Disabling, Other)
  Sender: FDA-Public Use
  Company Number: AU-009507513-1402AUS003208

PATIENT
  Age: 44 Year
  Sex: Female

DRUGS (2)
  1. IMPLANON [Suspect]
     Active Substance: ETONOGESTREL
     Dosage: UNK
     Route: 059
     Dates: start: 201302, end: 201402
  2. OLMETEC [Concomitant]
     Active Substance: OLMESARTAN MEDOXOMIL
     Indication: HYPERTENSION
     Dosage: UNK

REACTIONS (21)
  - Wound infection [Not Recovered/Not Resolved]
  - Otitis media [Unknown]
  - Neck pain [Not Recovered/Not Resolved]
  - Hot flush [Unknown]
  - Urinary tract infection [Recovered/Resolved]
  - Uterine leiomyoma [Unknown]
  - Agitation [Unknown]
  - Mood altered [Unknown]
  - Candida infection [Unknown]
  - Wound treatment [Not Recovered/Not Resolved]
  - Scar [Unknown]
  - Metrorrhagia [Unknown]
  - Hysterectomy [Unknown]
  - Vertigo positional [Unknown]
  - Intervertebral disc protrusion [Unknown]
  - Wound secretion [Not Recovered/Not Resolved]
  - Wound secretion [Not Recovered/Not Resolved]
  - Vaginal haemorrhage [Unknown]
  - Blood pressure abnormal [Unknown]
  - Insomnia [Unknown]
  - Intervertebral disc disorder [Unknown]

NARRATIVE: CASE EVENT DATE: 2013
